FAERS Safety Report 7137208-0 (Version None)
Quarter: 2010Q4

REPORT INFORMATION
  Report Type: 
  Country: None (occurrence: None)
  Receive Date: 20101206
  Receipt Date: 20100330
  Transmission Date: 20110411
  Serious: Yes (Death, Hospitalization)
  Sender: FDA-Public Use
  Company Number: US-ACTELION-A-US2007-18042

PATIENT

DRUGS (4)
  1. BOSENTAN TABLET 125 MG US [Suspect]
     Indication: PULMONARY ARTERIAL HYPERTENSION
     Dosage: 125 MG, BID
     Route: 048
     Dates: start: 20020201
  2. METOPROLOL [Concomitant]
     Dosage: 100 MG, QD
  3. METOPROLOL [Concomitant]
     Dosage: 25 MG, QD
  4. OXYGEN [Concomitant]

REACTIONS (5)
  - ATRIAL FIBRILLATION [None]
  - CARDIAC PACEMAKER INSERTION [None]
  - DEATH [None]
  - DYSPNOEA [None]
  - HEART RATE DECREASED [None]
